FAERS Safety Report 14261690 (Version 2)
Quarter: 2018Q1

REPORT INFORMATION
  Report Type: Report from Study
  Country: GB (occurrence: GB)
  Receive Date: 20171208
  Receipt Date: 20180109
  Transmission Date: 20180508
  Serious: Yes (Hospitalization)
  Sender: FDA-Public Use
  Company Number: GB-TAKEDA-2017TUS024969

PATIENT
  Age: 61 Year
  Sex: Female

DRUGS (20)
  1. DEXAMETHASONE. [Concomitant]
     Active Substance: DEXAMETHASONE
     Indication: FATIGUE
     Dosage: UNK
     Route: 048
     Dates: start: 20170208
  2. MORPHINE SULPHATE [Concomitant]
     Active Substance: MORPHINE SULFATE
     Indication: SPINAL PAIN
     Dosage: UNK
     Route: 048
     Dates: start: 20170208
  3. ORAMORPH [Concomitant]
     Active Substance: MORPHINE SULFATE
     Indication: SPINAL PAIN
     Dosage: UNK
     Route: 048
     Dates: start: 20170208
  4. CRIZOTINIB [Suspect]
     Active Substance: CRIZOTINIB
     Dosage: UNK, BID
     Route: 048
     Dates: start: 20170503, end: 20170520
  5. LORAZEPAM. [Concomitant]
     Active Substance: LORAZEPAM
     Indication: ANXIETY
     Dosage: UNK
     Route: 048
     Dates: start: 20170211
  6. CRIZOTINIB [Suspect]
     Active Substance: CRIZOTINIB
     Dosage: 250 MG, BID
     Route: 048
     Dates: start: 20170417, end: 20170425
  7. MOVICOL [Concomitant]
     Active Substance: POLYETHYLENE GLYCOL 3350\POTASSIUM CHLORIDE\SODIUM BICARBONATE\SODIUM CHLORIDE
     Indication: CONSTIPATION
     Dosage: UNK
     Route: 048
     Dates: start: 20170611
  8. TEMAZEPAM. [Concomitant]
     Active Substance: TEMAZEPAM
     Indication: INSOMNIA
     Dosage: 20 MG, UNK
     Route: 048
     Dates: start: 20170823
  9. PARACETAMOL [Concomitant]
     Active Substance: ACETAMINOPHEN
     Indication: SPINAL PAIN
     Dosage: UNK
     Route: 048
     Dates: start: 20170209
  10. NAPROXEN. [Concomitant]
     Active Substance: NAPROXEN
     Indication: SPINAL PAIN
     Dosage: UNK
     Route: 048
     Dates: start: 20170215
  11. CRIZOTINIB [Suspect]
     Active Substance: CRIZOTINIB
     Indication: LUNG ADENOCARCINOMA STAGE III
     Dosage: 250 MG, BID
     Route: 048
     Dates: start: 20170308, end: 20170411
  12. OMEPRAZOLE. [Concomitant]
     Active Substance: OMEPRAZOLE
     Indication: PROPHYLAXIS
     Dosage: UNK
     Route: 048
     Dates: start: 20170208
  13. PREGABALIN. [Concomitant]
     Active Substance: PREGABALIN
     Indication: SPINAL PAIN
     Dosage: UNK
     Route: 048
     Dates: start: 20170208
  14. CRIZOTINIB [Suspect]
     Active Substance: CRIZOTINIB
     Dosage: UNK, QD
     Route: 048
     Dates: start: 20170412, end: 20170412
  15. CRIZOTINIB [Suspect]
     Active Substance: CRIZOTINIB
     Dosage: UNK, QD
     Route: 048
     Dates: start: 20170928, end: 20171102
  16. DOCUSATE [Concomitant]
     Active Substance: DOCUSATE
     Indication: CONSTIPATION
     Dosage: UNK
     Route: 048
     Dates: start: 20170210
  17. CRIZOTINIB [Suspect]
     Active Substance: CRIZOTINIB
     Dosage: UNK, QD
     Route: 048
     Dates: start: 20170531, end: 20170610
  18. CRIZOTINIB [Suspect]
     Active Substance: CRIZOTINIB
     Dosage: UNK, QD
     Route: 048
     Dates: start: 20170615, end: 20170915
  19. SENNA                              /00142201/ [Concomitant]
     Active Substance: SENNA LEAF
     Indication: CONSTIPATION
     Dosage: UNK
     Route: 048
     Dates: start: 20170210
  20. DALTEPARIN [Concomitant]
     Active Substance: DALTEPARIN
     Indication: DEEP VEIN THROMBOSIS
     Dosage: UNK
     Route: 058
     Dates: start: 20170322

REACTIONS (1)
  - Back pain [Recovered/Resolved]

NARRATIVE: CASE EVENT DATE: 20171125
